FAERS Safety Report 5083612-4 (Version None)
Quarter: 2006Q3

REPORT INFORMATION
  Report Type: 
  Country: None (occurrence: None)
  Receive Date: 20060818
  Receipt Date: 20060815
  Transmission Date: 20061208
  Serious: Yes (Other)
  Sender: FDA-Public Use
  Company Number: GB-GLAXOSMITHKLINE-B0434501A

PATIENT
  Age: 11 Year
  Sex: Male

DRUGS (3)
  1. BECOTIDE [Suspect]
     Indication: ASTHMA
     Route: 055
     Dates: start: 20060713, end: 20060715
  2. DISPROL [Concomitant]
     Indication: PAIN
     Route: 048
  3. VENTOLIN [Concomitant]
     Indication: ASTHMA
     Route: 055

REACTIONS (3)
  - ORAL INTAKE REDUCED [None]
  - PAIN [None]
  - SWELLING FACE [None]
